FAERS Safety Report 24708162 (Version 1)
Quarter: 2024Q4

REPORT INFORMATION
  Report Type: Spontaneous
  Country: CN (occurrence: CN)
  Receive Date: 20241206
  Receipt Date: 20241206
  Transmission Date: 20250115
  Serious: Yes (Other)
  Sender: ABBVIE
  Company Number: CN-ABBVIE-6031264

PATIENT
  Age: 57 Year
  Sex: Male
  Weight: 61 kg

DRUGS (2)
  1. VENCLEXTA [Suspect]
     Active Substance: VENETOCLAX
     Indication: Prophylactic chemotherapy
     Route: 048
     Dates: start: 20241012, end: 20241025
  2. AZACITIDINE [Suspect]
     Active Substance: AZACITIDINE
     Indication: Prophylactic chemotherapy
     Route: 041
     Dates: start: 20241012, end: 20241019

REACTIONS (2)
  - Myelosuppression [Recovering/Resolving]
  - Off label use [Unknown]

NARRATIVE: CASE EVENT DATE: 20240101
